FAERS Safety Report 7760774-9 (Version None)
Quarter: 2011Q3

REPORT INFORMATION
  Report Type: 
  Country: None (occurrence: None)
  Receive Date: 20110919
  Receipt Date: 20110909
  Transmission Date: 20111222
  Serious: Yes (Other)
  Sender: FDA-Public Use
  Company Number: US-ASTRAZENECA-2011SE54480

PATIENT
  Age: 53 Year
  Sex: Female

DRUGS (1)
  1. SEROQUEL XR [Suspect]
     Route: 048

REACTIONS (6)
  - CERVIX CARCINOMA STAGE IV [None]
  - THROAT CANCER [None]
  - CROHN'S DISEASE [None]
  - VISUAL ACUITY REDUCED [None]
  - HYPOACUSIS [None]
  - WALKING AID USER [None]
